FAERS Safety Report 19804255 (Version 2)
Quarter: 2022Q3

REPORT INFORMATION
  Report Type: Spontaneous
  Country: US (occurrence: None)
  Receive Date: 20210908
  Receipt Date: 20220907
  Transmission Date: 20221026
  Serious: No
  Sender: FDA-Public Use
  Company Number: US-FARMAPROD-202104-0587

PATIENT
  Sex: Male
  Weight: 127.12 kg

DRUGS (5)
  1. OXERVATE [Suspect]
     Active Substance: CENEGERMIN-BKBJ
     Indication: Neurotrophic keratopathy
     Route: 047
     Dates: start: 20201124, end: 20210119
  2. OXERVATE [Suspect]
     Active Substance: CENEGERMIN-BKBJ
     Route: 047
     Dates: start: 20210416, end: 20210610
  3. CEQUA [Concomitant]
     Active Substance: CYCLOSPORINE
  4. METFORMIN ER GASTRIC [Concomitant]
  5. GENTEAL TEARS [Concomitant]
     Active Substance: DEXTRAN 70\HYPROMELLOSE 2910 (4000 MPA.S)
     Dosage: 0.1%-0.3%

REACTIONS (5)
  - Wrong technique in product usage process [Unknown]
  - Eye pain [Unknown]
  - Foreign body sensation in eyes [Unknown]
  - Ocular discomfort [Unknown]
  - Eye swelling [Unknown]
